FAERS Safety Report 24529312 (Version 1)
Quarter: 2024Q4

REPORT INFORMATION
  Report Type: Spontaneous
  Country: US (occurrence: None)
  Receive Date: 20241018
  Receipt Date: 20241018
  Transmission Date: 20250114
  Serious: Yes (Other)
  Sender: Public
  Company Number: None

PATIENT
  Age: 74 Year
  Sex: Female
  Weight: 60.75 kg

DRUGS (2)
  1. KENALOG [Suspect]
     Active Substance: TRIAMCINOLONE ACETONIDE
     Indication: Pain in extremity
  2. ESTRADIOL [Concomitant]
     Active Substance: ESTRADIOL

REACTIONS (8)
  - Dehydration [None]
  - Decreased appetite [None]
  - Headache [None]
  - Chills [None]
  - Abdominal pain [None]
  - Diarrhoea [None]
  - Muscular weakness [None]
  - Insomnia [None]

NARRATIVE: CASE EVENT DATE: 20240915
